FAERS Safety Report 7771526-8 (Version None)
Quarter: 2011Q3

REPORT INFORMATION
  Report Type: 
  Country: None (occurrence: None)
  Receive Date: 20110922
  Receipt Date: 20100721
  Transmission Date: 20111222
  Serious: No
  Sender: FDA-Public Use
  Company Number: US-ASTRAZENECA-2009UW11632

PATIENT
  Age: 18121 Day
  Sex: Female
  Weight: 95.3 kg

DRUGS (2)
  1. SEROQUEL [Suspect]
     Indication: INSOMNIA
     Route: 048
     Dates: start: 20040520, end: 20051125
  2. SEROQUEL [Suspect]
     Indication: ANXIETY
     Route: 048
     Dates: start: 20040520, end: 20051125

REACTIONS (3)
  - BLOOD TRIGLYCERIDES INCREASED [None]
  - OBESITY [None]
  - TYPE 2 DIABETES MELLITUS [None]
